FAERS Safety Report 7580803-5 (Version None)
Quarter: 2011Q2

REPORT INFORMATION
  Report Type: 
  Country: None (occurrence: None)
  Receive Date: 20110629
  Receipt Date: 20110614
  Transmission Date: 20111010
  Serious: Yes (Hospitalization, Other)
  Sender: FDA-Public Use
  Company Number: GB-WATSON-2011-08204

PATIENT
  Age: 41 Year
  Sex: Female

DRUGS (3)
  1. BECLOMETHASONE DIPROPIONATE [Suspect]
     Indication: ASTHMA
     Dosage: UNK
     Route: 065
  2. CANDESARTAN CILEXETIL [Suspect]
     Indication: HYPERTENSION
     Dosage: UNK
     Route: 048
  3. ALBUTEROL [Suspect]
     Indication: ASTHMA
     Dosage: UNK
     Route: 055

REACTIONS (4)
  - CONGENITAL ANOMALY IN OFFSPRING [None]
  - DRUG EXPOSURE DURING PREGNANCY [None]
  - ANTEPARTUM HAEMORRHAGE [None]
  - OLIGOHYDRAMNIOS [None]
